FAERS Safety Report 15310614 (Version 4)
Quarter: 2020Q3

REPORT INFORMATION
  Report Type: Report from Study
  Country: DE (occurrence: DE)
  Receive Date: 20180823
  Receipt Date: 20200808
  Transmission Date: 20201102
  Serious: Yes (Death, Hospitalization, Other)
  Sender: FDA-Public Use
  Company Number: PHHY2016DE147749

PATIENT
  Sex: Male
  Weight: 60 kg

DRUGS (15)
  1. OPDIVO [Suspect]
     Active Substance: NIVOLUMAB
     Dosage: 3 MG/KG, UNK
     Route: 042
     Dates: start: 20161207, end: 20161220
  2. METOPROLOL. [Concomitant]
     Active Substance: METOPROLOL
     Indication: HYPERTENSION
     Dosage: 50 MG, QD
     Route: 048
  3. PANTOZOL [Concomitant]
     Active Substance: PANTOPRAZOLE SODIUM
     Indication: PROPHYLAXIS
     Dosage: 40 MG, QD
     Route: 048
     Dates: start: 20161111
  4. MST [Concomitant]
     Indication: PRODUCT USED FOR UNKNOWN INDICATION
     Dosage: 10 MG, QD
     Route: 048
     Dates: start: 20170117, end: 20170124
  5. OPDIVO [Suspect]
     Active Substance: NIVOLUMAB
     Indication: METASTATIC RENAL CELL CARCINOMA
     Dosage: 3 MG/KG, UNK
     Route: 042
     Dates: start: 20161026, end: 20161108
  6. OPDIVO [Suspect]
     Active Substance: NIVOLUMAB
     Dosage: 3 MG/KG, UNK
     Route: 042
     Dates: start: 20161221, end: 20170103
  7. OPDIVO [Suspect]
     Active Substance: NIVOLUMAB
     Dosage: 3 MG/KG, UNK
     Route: 042
     Dates: start: 20170104, end: 20170104
  8. SIMVA [Concomitant]
     Active Substance: SIMVASTATIN
     Indication: HYPERCHOLESTEROLAEMIA
     Dosage: 40 MG, QD
     Route: 048
  9. VOTRIENT [Suspect]
     Active Substance: PAZOPANIB HYDROCHLORIDE
     Dosage: 800 MG, QD
     Route: 048
     Dates: start: 20161012, end: 20161018
  10. HYDROXYUREA. [Concomitant]
     Active Substance: HYDROXYUREA
     Indication: THROMBOCYTOSIS
     Dosage: 500 MG, BID
     Route: 048
     Dates: start: 201102, end: 20161123
  11. VOTRIENT [Suspect]
     Active Substance: PAZOPANIB HYDROCHLORIDE
     Indication: METASTATIC RENAL CELL CARCINOMA
     Dosage: 400 MG, QD
     Route: 048
     Dates: start: 20160826, end: 20160926
  12. ASPIRIN. [Concomitant]
     Active Substance: ASPIRIN
     Indication: PROPHYLAXIS
     Dosage: 100 MG, QD
     Route: 048
     Dates: start: 200512
  13. OPDIVO [Suspect]
     Active Substance: NIVOLUMAB
     Dosage: 3 MG/KG, UNK
     Route: 042
     Dates: start: 20161109, end: 20161122
  14. OPDIVO [Suspect]
     Active Substance: NIVOLUMAB
     Dosage: 3 MG/KG, UNK
     Route: 042
     Dates: start: 20161123, end: 20161206
  15. CITALOPRAM [Concomitant]
     Active Substance: CITALOPRAM HYDROBROMIDE
     Indication: DEPRESSED MOOD
     Dosage: 10 MG, QD
     Route: 048
     Dates: start: 20161026

REACTIONS (19)
  - Diarrhoea [Recovered/Resolved]
  - Tumour pain [Recovered/Resolved]
  - Anaemia [Not Recovered/Not Resolved]
  - Dyspnoea [Not Recovered/Not Resolved]
  - Metastatic renal cell carcinoma [Fatal]
  - Haematemesis [Unknown]
  - Duodenal ulcer [Unknown]
  - Depression [Not Recovered/Not Resolved]
  - Malignant neoplasm progression [Fatal]
  - Dizziness [Not Recovered/Not Resolved]
  - Sleep disorder [Unknown]
  - General physical health deterioration [Unknown]
  - Adrenal insufficiency [Recovering/Resolving]
  - Cachexia [Unknown]
  - Fatigue [Unknown]
  - Cough [Unknown]
  - Rash papular [Unknown]
  - Dysgeusia [Unknown]
  - Rash pruritic [Recovered/Resolved]

NARRATIVE: CASE EVENT DATE: 201609
